FAERS Safety Report 23624886 (Version 2)
Quarter: 2024Q1

REPORT INFORMATION
  Report Type: Spontaneous
  Country: US (occurrence: US)
  Receive Date: 20240313
  Receipt Date: 20240329
  Transmission Date: 20240409
  Serious: No
  Sender: FDA-Public Use
  Company Number: US-TEVA-VS-3165313

PATIENT
  Age: 80 Year
  Sex: Female

DRUGS (2)
  1. CLONAZEPAM [Suspect]
     Active Substance: CLONAZEPAM
     Indication: Insomnia
     Dosage: TIME INTERVAL: 0.33333333 DAYS: 1 IN THE MORNING AND 2 AT NIGHT
     Route: 048
  2. VISTARIL [Concomitant]
     Active Substance: HYDROXYZINE PAMOATE

REACTIONS (11)
  - Drug ineffective [Unknown]
  - Weight increased [Unknown]
  - Diarrhoea [Unknown]
  - Constipation [Unknown]
  - Therapeutic product effect delayed [Unknown]
  - Salivary hypersecretion [Unknown]
  - Somnolence [Unknown]
  - Nausea [Unknown]
  - Sleep deficit [Unknown]
  - Rhinorrhoea [Unknown]
  - Depression [Unknown]

NARRATIVE: CASE EVENT DATE: 20240202
